FAERS Safety Report 21493143 (Version 1)
Quarter: 2022Q4

REPORT INFORMATION
  Report Type: Report from Study
  Country: IT (occurrence: IT)
  Receive Date: 20221021
  Receipt Date: 20221021
  Transmission Date: 20230113
  Serious: Yes (Hospitalization, Other)
  Sender: FDA-Public Use
  Company Number: None

PATIENT
  Age: 17 Year
  Sex: Male
  Weight: 60 kg

DRUGS (5)
  1. METHOTREXATE (METHOTREXATE SODIUM) [Suspect]
     Active Substance: METHOTREXATE SODIUM
     Indication: Acute lymphocytic leukaemia
     Dosage: 12 MG / DAY ON 03/08 AND 10/08/2022 , METOTRESSATO TEVA , UNIT DOSE :  12 MG  ,  DURATION : 7 DAYS
     Dates: start: 20220803, end: 20220810
  2. VINCRISTINE [Suspect]
     Active Substance: VINCRISTINE
     Indication: Acute lymphocytic leukaemia
     Dosage: 48 MILLIGRAM DAILY; 48 MG / DAY
     Dates: start: 20220725, end: 20220725
  3. CYTARABINE [Suspect]
     Active Substance: CYTARABINE
     Indication: Acute lymphocytic leukaemia
     Dosage: 122 MG / DAY FROM DAY 03/08 TO DAY 06/08/2022, 122 MG / DAY FROM DAY 10/08 TO DAY 13/08/2022 , UNIT
     Dates: start: 20220803, end: 20220813
  4. THIOGUANINE [Suspect]
     Active Substance: THIOGUANINE
     Indication: Acute lymphocytic leukaemia
     Dosage: 100 MILLIGRAM DAILY; 100 MG / DAY , DURATION : 14 DAYS
     Dates: start: 20220801, end: 20220815
  5. CYCLOPHOSPHAMIDE [Suspect]
     Active Substance: CYCLOPHOSPHAMIDE
     Indication: Acute lymphocytic leukaemia
     Dosage: 800 MILLIGRAM DAILY; 800 MG / DAY
     Dates: start: 20220801, end: 20220801

REACTIONS (8)
  - Leukopenia [Not Recovered/Not Resolved]
  - Pancytopenia [Recovering/Resolving]
  - Febrile neutropenia [Recovered/Resolved]
  - Thrombocytopenia [Recovered/Resolved]
  - Hypogammaglobulinaemia [Not Recovered/Not Resolved]
  - Stomatitis [Recovered/Resolved]
  - Alanine aminotransferase increased [Not Recovered/Not Resolved]
  - Blood bilirubin increased [Recovered/Resolved]

NARRATIVE: CASE EVENT DATE: 20220801
